FAERS Safety Report 6631856-X (Version None)
Quarter: 2010Q1

REPORT INFORMATION
  Report Type: 
  Country: None (occurrence: None)
  Receive Date: 20100312
  Receipt Date: 20100301
  Transmission Date: 20100710
  Serious: No
  Sender: FDA-Public Use
  Company Number: US-B.I. PHARMACEUTICALS,INC./RIDGEFIELD-2010-BP-02546BP

PATIENT
  Sex: Female

DRUGS (6)
  1. ZANTAC 75 [Suspect]
     Indication: DYSPEPSIA
     Dosage: 150 MG
     Route: 048
     Dates: start: 20100225
  2. ZANTAC 75 [Suspect]
  3. TYLENOL (CAPLET) [Suspect]
     Indication: BACK PAIN
     Dates: start: 20100225
  4. TYLENOL (CAPLET) [Suspect]
     Indication: ARTHRALGIA
  5. IBUPROFEN [Suspect]
     Indication: BACK PAIN
     Dates: start: 20100201, end: 20100227
  6. IBUPROFEN [Suspect]
     Indication: ARTHRALGIA

REACTIONS (1)
  - DIARRHOEA [None]
